FAERS Safety Report 8047537-4 (Version None)
Quarter: 2012Q1

REPORT INFORMATION
  Report Type: 
  Country: None (occurrence: None)
  Receive Date: 20120116
  Receipt Date: 20090318
  Transmission Date: 20120608
  Serious: Yes (Hospitalization)
  Sender: FDA-Public Use
  Company Number: US-GLAXOSMITHKLINE-A0775127A

PATIENT
  Sex: Female

DRUGS (8)
  1. NEURONTIN [Concomitant]
  2. LIPITOR [Concomitant]
  3. REZULIN [Concomitant]
     Dates: end: 20000101
  4. LOPID [Concomitant]
  5. THEOPHYLLINE [Concomitant]
  6. AVANDIA [Suspect]
     Indication: DIABETES MELLITUS
     Dosage: 8MG PER DAY
     Route: 048
     Dates: start: 20000101
  7. INSULIN [Concomitant]
  8. ALBUTEROL [Concomitant]

REACTIONS (5)
  - CARDIAC DISORDER [None]
  - MYOCARDIAL INFARCTION [None]
  - ANGINA PECTORIS [None]
  - CARDIAC FAILURE CONGESTIVE [None]
  - CORONARY ARTERY DISEASE [None]
